FAERS Safety Report 6266752-3 (Version None)
Quarter: 2009Q3

REPORT INFORMATION
  Report Type: 
  Country: None (occurrence: None)
  Receive Date: 20090714
  Receipt Date: 20090709
  Transmission Date: 20100115
  Serious: Yes (Disabling)
  Sender: FDA-Public Use
  Company Number: DK-WYE-G03454709

PATIENT
  Sex: Female
  Weight: 60 kg

DRUGS (6)
  1. EFFEXOR [Suspect]
     Indication: DEPRESSION
     Route: 048
     Dates: start: 20080729, end: 20080731
  2. EFFEXOR [Interacting]
     Route: 048
     Dates: start: 20080801, end: 20081118
  3. IMOVANE [Concomitant]
     Indication: INSOMNIA
     Route: 048
     Dates: start: 20080801
  4. PLENDIL [Concomitant]
     Indication: HYPERTENSION
     Route: 048
     Dates: start: 19940101
  5. VESICARE [Interacting]
  6. FLUANXOL [Concomitant]
     Indication: ANXIETY
     Route: 048
     Dates: start: 19960101

REACTIONS (2)
  - ANGLE CLOSURE GLAUCOMA [None]
  - VISUAL IMPAIRMENT [None]
